FAERS Safety Report 10770589 (Version 1)
Quarter: 2015Q1

REPORT INFORMATION
  Report Type: Spontaneous
  Country: CN (occurrence: CN)
  Receive Date: 20150206
  Receipt Date: 20150206
  Transmission Date: 20150721
  Serious: Yes (Other)
  Sender: FDA-Public Use
  Company Number: CN-BAYER-2015-017248

PATIENT
  Age: 41 Year
  Sex: Female

DRUGS (2)
  1. NEXAVAR [Suspect]
     Active Substance: SORAFENIB
     Indication: RENAL CELL CARCINOMA
     Dosage: 600 MG, BID
  2. NEXAVAR [Suspect]
     Active Substance: SORAFENIB
     Indication: RENAL CELL CARCINOMA
     Dosage: 400 MG, BID
     Route: 048
     Dates: start: 201205

REACTIONS (8)
  - Diarrhoea [None]
  - Alopecia [None]
  - Palmar-plantar erythrodysaesthesia syndrome [None]
  - Chest pain [None]
  - Back pain [None]
  - Renal cell carcinoma [None]
  - Anaemia [None]
  - Off label use [None]
